FAERS Safety Report 7213509-2 (Version None)
Quarter: 2011Q1

REPORT INFORMATION
  Report Type: 
  Country: None (occurrence: None)
  Receive Date: 20110106
  Receipt Date: 20110105
  Transmission Date: 20110831
  Serious: Yes (Hospitalization)
  Sender: FDA-Public Use
  Company Number: US-JNJFOC-20101204765

PATIENT
  Sex: Female
  Weight: 77.11 kg

DRUGS (4)
  1. SIMPONI [Suspect]
     Indication: RHEUMATOID ARTHRITIS
     Route: 058
  2. LISINOPRIL [Concomitant]
     Indication: ARTHRITIS
     Route: 048
  3. FOLIC ACID [Concomitant]
     Indication: FOLATE DEFICIENCY
     Route: 048
  4. AZATHIOPRINE [Concomitant]
     Indication: ARTHRITIS
     Route: 048

REACTIONS (3)
  - CHEST PAIN [None]
  - HIATUS HERNIA [None]
  - DRUG DOSE OMISSION [None]
